FAERS Safety Report 7775083-1 (Version None)
Quarter: 2011Q3

REPORT INFORMATION
  Report Type: 
  Country: None (occurrence: None)
  Receive Date: 20110923
  Receipt Date: 20110920
  Transmission Date: 20111222
  Serious: Yes (Life-Threatening, Other)
  Sender: FDA-Public Use
  Company Number: IT-ROXANE LABORATORIES, INC.-2011-RO-01318RO

PATIENT
  Age: 61 Year
  Sex: Female

DRUGS (9)
  1. ENALAPRIL MALEATE [Suspect]
     Indication: SUPPORTIVE CARE
  2. ASPIRIN [Suspect]
     Indication: THROMBOSIS PROPHYLAXIS
     Dosage: 100 MG
  3. DEXAMETHASONE [Suspect]
     Indication: MULTIPLE MYELOMA
  4. THALIDOMIDE [Suspect]
     Indication: AMYLOIDOSIS
     Route: 048
  5. FUROSEMIDE [Suspect]
     Indication: SUPPORTIVE CARE
  6. THALIDOMIDE [Suspect]
     Indication: MULTIPLE MYELOMA
  7. SPIRONOLACTONE [Suspect]
     Indication: SUPPORTIVE CARE
  8. ATORVASTATIN [Suspect]
     Indication: SUPPORTIVE CARE
  9. DEXAMETHASONE [Suspect]
     Indication: AMYLOIDOSIS
     Dosage: 20 MG
     Route: 048

REACTIONS (6)
  - ACUTE MYOCARDIAL INFARCTION [None]
  - FATIGUE [None]
  - DYSPNOEA EXERTIONAL [None]
  - COGNITIVE DISORDER [None]
  - FLUID RETENTION [None]
  - CONSTIPATION [None]
